FAERS Safety Report 6164677-5 (Version None)
Quarter: 2009Q2

REPORT INFORMATION
  Report Type: 
  Country: None (occurrence: None)
  Receive Date: 20090423
  Receipt Date: 20090415
  Transmission Date: 20091009
  Serious: Yes (Hospitalization, Disabling)
  Sender: FDA-Public Use
  Company Number: FI-ROCHE-625597

PATIENT
  Sex: Female

DRUGS (3)
  1. XELODA [Suspect]
     Route: 048
     Dates: start: 20080222, end: 20081020
  2. AVASTIN [Suspect]
     Dosage: STRENGTH: 25 MG/ML
     Route: 041
     Dates: start: 20080918, end: 20081020
  3. ELOXATIN [Suspect]
     Dosage: STRENGTH: 5 MG/ML
     Route: 041
     Dates: start: 20080222, end: 20080516

REACTIONS (1)
  - REVERSIBLE POSTERIOR LEUKOENCEPHALOPATHY SYNDROME [None]
